FAERS Safety Report 24014459 (Version 1)
Quarter: 2024Q2

REPORT INFORMATION
  Report Type: Spontaneous
  Country: PL (occurrence: PL)
  Receive Date: 20240626
  Receipt Date: 20240626
  Transmission Date: 20240716
  Serious: Yes (Life-Threatening)
  Sender: FDA-Public Use
  Company Number: PL-SUN PHARMACEUTICAL INDUSTRIES LTD-2024RR-453328

PATIENT
  Age: 73 Year
  Sex: Male
  Weight: 84 kg

DRUGS (2)
  1. GEMCITABINE [Suspect]
     Active Substance: GEMCITABINE
     Indication: Soft tissue sarcoma
     Dosage: 65 MILLIGRAM/SQ. METER
     Route: 040
     Dates: start: 20200922, end: 20200922
  2. DOCETAXEL [Suspect]
     Active Substance: DOCETAXEL\DOCETAXEL ANHYDROUS
     Indication: Soft tissue sarcoma
     Dosage: 65 MILLIGRAM/SQ. METER
     Route: 040
     Dates: start: 20200922, end: 20200922

REACTIONS (2)
  - Asthenia [Recovering/Resolving]
  - Neutropenia [Recovering/Resolving]

NARRATIVE: CASE EVENT DATE: 20200929
